FAERS Safety Report 5663564-6 (Version None)
Quarter: 2008Q1

REPORT INFORMATION
  Report Type: 
  Country: None (occurrence: None)
  Receive Date: 20080313
  Receipt Date: 20080221
  Transmission Date: 20080703
  Serious: No
  Sender: FDA-Public Use
  Company Number: US-BOEHRINGER INGELHEIM GMBH, GERMANY-2008-BP-02812BP

PATIENT
  Age: 45 Year
  Sex: Female

DRUGS (2)
  1. MIRAPEX [Suspect]
  2. REQUIP [Concomitant]

REACTIONS (2)
  - PULMONARY FIBROSIS [None]
  - PULMONARY HYPERTENSION [None]
